FAERS Safety Report 8830866 (Version 1)
Quarter: 2012Q4

REPORT INFORMATION
  Report Type: 
  Country: CA (occurrence: CA)
  Receive Date: 20121008
  Receipt Date: 20121008
  Transmission Date: 20130627
  Serious: Yes (Other)
  Sender: FDA-Public Use
  Company Number: CA-BAYER-2012-101619

PATIENT
  Age: 44 Year
  Sex: Female
  Weight: 111 kg

DRUGS (4)
  1. MIRENA [Suspect]
     Dosage: UNK
     Dates: start: 201003
  2. COUMADIN [Concomitant]
  3. CYMBALTA [Concomitant]
  4. ARTHROTEC [DICLOFENAC SODIUM] [Concomitant]

REACTIONS (4)
  - Thrombosis [None]
  - Pulmonary embolism [None]
  - Pulmonary embolism [None]
  - Anticoagulation drug level below therapeutic [None]
